FAERS Safety Report 23665450 (Version 1)
Quarter: 2024Q1

REPORT INFORMATION
  Report Type: Report from Study
  Country: US (occurrence: US)
  Receive Date: 20240323
  Receipt Date: 20240323
  Transmission Date: 20240410
  Serious: Yes (Hospitalization, Other)
  Sender: FDA-Public Use
  Company Number: US-ABBVIE-5573755

PATIENT
  Age: 79 Year
  Sex: Female

DRUGS (1)
  1. HUMIRA [Suspect]
     Active Substance: ADALIMUMAB
     Indication: Psoriatic arthropathy
     Dosage: FORM STRENGTH: 40 MILLIGRAM, CITRATE FREE
     Route: 058

REACTIONS (12)
  - Surgery [Unknown]
  - Neurodermatitis [Unknown]
  - Insomnia [Unknown]
  - Skin laceration [Unknown]
  - Pruritus [Unknown]
  - Weight decreased [Unknown]
  - Papule [Unknown]
  - Malaise [Unknown]
  - Malnutrition [Unknown]
  - Dehydration [Unknown]
  - Balance disorder [Unknown]
  - Colostomy [Unknown]

NARRATIVE: CASE EVENT DATE: 20230201
